FAERS Safety Report 9846251 (Version 1)
Quarter: 2013Q4

REPORT INFORMATION
  Report Type: Spontaneous
  Country: US (occurrence: None)
  Receive Date: 20131223
  Receipt Date: 20131223
  Transmission Date: 20140711
  Serious: No
  Sender: FDA-Public Use
  Company Number: CABO-13003252

PATIENT
  Age: 46 Year
  Sex: Male

DRUGS (3)
  1. COMETRIQ (CARBOZANTINIB) CAPSULE [Suspect]
     Indication: THYROID CANCER
     Route: 048
     Dates: start: 20130830, end: 2013
  2. SYNTHROID (LEVOTHYROXINE SODIUM) [Concomitant]
  3. VITAMIN D (COLECALCIFEROL) [Concomitant]

REACTIONS (16)
  - Flatulence [None]
  - Flushing [None]
  - Chills [None]
  - Musculoskeletal pain [None]
  - Cough [None]
  - Fatigue [None]
  - Limb discomfort [None]
  - Blood pressure increased [None]
  - Headache [None]
  - Abdominal pain [None]
  - Constipation [None]
  - Dry skin [None]
  - Rash [None]
  - Diarrhoea [None]
  - Vomiting [None]
  - Nausea [None]
